FAERS Safety Report 13937161 (Version 1)
Quarter: 2017Q3

REPORT INFORMATION
  Report Type: Spontaneous
  Country: US (occurrence: US)
  Receive Date: 20170905
  Receipt Date: 20170905
  Transmission Date: 20171127
  Serious: Yes (Life-Threatening, Hospitalization)
  Sender: FDA-Public Use
  Company Number: PHEH2017US027889

PATIENT
  Sex: Female
  Weight: 65.3 kg

DRUGS (2)
  1. CLONAZEPAM TABLETS, USP [Suspect]
     Active Substance: CLONAZEPAM
     Indication: ANXIETY
     Dosage: 1.5 MG, QD
     Route: 048
     Dates: start: 2011
  2. CLONAZEPAM TABLETS, USP [Suspect]
     Active Substance: CLONAZEPAM
     Indication: RESTLESS LEGS SYNDROME
     Dosage: 1 MG, QD
     Route: 048

REACTIONS (6)
  - Gastric ulcer [Not Recovered/Not Resolved]
  - Dizziness [Not Recovered/Not Resolved]
  - Apparent death [Not Recovered/Not Resolved]
  - Migraine [Not Recovered/Not Resolved]
  - Headache [Not Recovered/Not Resolved]
  - Gastric haemorrhage [Not Recovered/Not Resolved]

NARRATIVE: CASE EVENT DATE: 2012
